FAERS Safety Report 12853213 (Version 1)
Quarter: 2016Q4

REPORT INFORMATION
  Report Type: Spontaneous
  Country: US (occurrence: US)
  Receive Date: 20161017
  Receipt Date: 20161017
  Transmission Date: 20170207
  Serious: No
  Sender: FDA-Public Use
  Company Number: None

PATIENT
  Age: 32 Year
  Sex: Female
  Weight: 61.24 kg

DRUGS (2)
  1. ONE A DAY WOMEN^S [Concomitant]
     Active Substance: MINERALS\VITAMINS
  2. MIRENA [Suspect]
     Active Substance: LEVONORGESTREL
     Dates: start: 20160830, end: 20161017

REACTIONS (1)
  - Alopecia [None]

NARRATIVE: CASE EVENT DATE: 20160901
